FAERS Safety Report 9263716 (Version 3)
Quarter: 2013Q3

REPORT INFORMATION
  Report Type: Report from Study
  Country: JP (occurrence: JP)
  Receive Date: 20130430
  Receipt Date: 20130830
  Transmission Date: 20140515
  Serious: Yes (Other)
  Sender: FDA-Public Use
  Company Number: PHHY2012JP049075

PATIENT
  Age: 36 Year
  Sex: Female

DRUGS (35)
  1. LEPONEX / CLOZARIL [Suspect]
     Indication: SCHIZOPHRENIA, PARANOID TYPE
     Dosage: 12.5 MG, UNK
     Route: 048
     Dates: start: 20110330, end: 20110331
  2. LEPONEX / CLOZARIL [Suspect]
     Dosage: 25 MG, UNK
     Route: 048
     Dates: start: 20110401, end: 20110405
  3. LEPONEX / CLOZARIL [Suspect]
     Dosage: 50 MG, UNK
     Route: 048
     Dates: start: 20110406, end: 20110412
  4. LEPONEX / CLOZARIL [Suspect]
     Dosage: 75 MG, UNK
     Route: 048
     Dates: start: 20110413, end: 20110419
  5. LEPONEX / CLOZARIL [Suspect]
     Dosage: 100 MG, UNK
     Route: 048
     Dates: start: 20110420, end: 20110426
  6. LEPONEX / CLOZARIL [Suspect]
     Dosage: 150 MG, UNK
     Route: 048
     Dates: start: 20110427, end: 20110502
  7. LEPONEX / CLOZARIL [Suspect]
     Dosage: 175 MG, UNK
     Route: 048
     Dates: start: 20110503, end: 20110509
  8. LEPONEX / CLOZARIL [Suspect]
     Dosage: 200 MG, UNK
     Route: 048
     Dates: start: 20110510, end: 20110517
  9. LEPONEX / CLOZARIL [Suspect]
     Dosage: 250 MG, UNK
     Route: 048
     Dates: start: 20110518, end: 20110524
  10. LEPONEX / CLOZARIL [Suspect]
     Dosage: 300 MG, UNK
     Route: 048
     Dates: start: 20110525, end: 20110531
  11. LEPONEX / CLOZARIL [Suspect]
     Dosage: 350 MG, UNK
     Route: 048
     Dates: start: 20110601, end: 20110614
  12. LEPONEX / CLOZARIL [Suspect]
     Dosage: 400 MG, UNK
     Route: 048
     Dates: start: 20110615, end: 20110719
  13. LEPONEX / CLOZARIL [Suspect]
     Dosage: 450 MG, UNK
     Route: 048
     Dates: start: 20110720, end: 20110726
  14. LEPONEX / CLOZARIL [Suspect]
     Dosage: 500 MG, UNK
     Route: 048
     Dates: start: 20110727
  15. LEPONEX / CLOZARIL [Suspect]
     Dosage: 600 MG, UNK
     Route: 048
     Dates: start: 20111001, end: 20120821
  16. LEPONEX / CLOZARIL [Suspect]
     Dosage: 500 MG, UNK
     Route: 048
     Dates: start: 20120821, end: 20130330
  17. LEVOTOMIN [Concomitant]
     Dosage: 100 MG, UNK
     Route: 048
     Dates: start: 20110330
  18. LEVOTOMIN [Concomitant]
     Dosage: 50 MG, UNK
     Route: 048
  19. LEVOTOMIN [Concomitant]
     Dosage: 5 MG, UNK
     Route: 048
     Dates: end: 20110531
  20. ROHYPNOL [Concomitant]
     Indication: SCHIZOPHRENIA, PARANOID TYPE
     Dosage: 2 MG, UNK
     Route: 048
  21. LIPOVAS [Concomitant]
     Indication: HYPERLIPIDAEMIA
     Dosage: 5 MG, UNK
     Route: 048
     Dates: start: 20110823
  22. MAGLAX [Concomitant]
     Indication: HYPERLIPIDAEMIA
     Dosage: 990 MG, UNK
     Route: 048
     Dates: start: 20110514, end: 20110906
  23. MEVALOTIN [Concomitant]
     Indication: HYPERLIPIDAEMIA
     Dosage: 10 MG, UNK
     Route: 048
  24. WYPAX [Concomitant]
     Indication: SCHIZOPHRENIA, PARANOID TYPE
     Dosage: 1.5 MG, UNK
     Route: 048
     Dates: start: 20110514
  25. WYPAX [Concomitant]
     Dosage: 1 MG, UNK
     Route: 048
  26. LAMICTAL [Concomitant]
     Indication: SCHIZOPHRENIA, PARANOID TYPE
     Dosage: 25 MG, UNK
     Route: 048
     Dates: start: 20110907
  27. LAMICTAL [Concomitant]
     Dosage: 50 MG, UNK
     Route: 048
  28. LAMICTAL [Concomitant]
     Dosage: 75 MG, UNK
     Route: 048
  29. LAMICTAL [Concomitant]
     Dosage: 100 MG, UNK
     Route: 048
  30. LAMICTAL [Concomitant]
     Dosage: 150 MG, UNK
     Route: 048
  31. LAMICTAL [Concomitant]
     Dosage: 200 MG, UNK
     Route: 048
  32. LAMICTAL [Concomitant]
     Dosage: 100 MG, UNK
     Route: 048
  33. KAMAG G [Concomitant]
     Indication: HYPERLIPIDAEMIA
     Dosage: 1500 MG, UNK
     Route: 048
     Dates: start: 20110907
  34. MARZULENE-S [Concomitant]
     Indication: HYPERLIPIDAEMIA
     Dosage: 1500 MG, UNK
     Route: 048
     Dates: start: 20110914
  35. LIMAS [Concomitant]
     Dosage: 600 MG, UNK
     Route: 048
     Dates: start: 201304, end: 20130422

REACTIONS (3)
  - Suicide attempt [Recovering/Resolving]
  - Suicidal ideation [Recovering/Resolving]
  - Heart rate increased [Unknown]
